FAERS Safety Report 8515517-8 (Version None)
Quarter: 2012Q3

REPORT INFORMATION
  Report Type: 
  Country: None (occurrence: None)
  Receive Date: 20120717
  Receipt Date: 20120714
  Transmission Date: 20120928
  Serious: No
  Sender: FDA-Public Use
  Company Number: US-PFIZER INC-2012169730

PATIENT
  Sex: Female
  Weight: 66.667 kg

DRUGS (3)
  1. ASPIRIN [Concomitant]
     Dosage: UNK, ONCE A DAY
  2. FIORICET [Concomitant]
     Indication: MIGRAINE
     Dosage: UNK, AS NEEDED
  3. JUNIOR STRENGTH ADVIL [Suspect]
     Dosage: UNK
     Route: 048
     Dates: start: 20120714, end: 20120714

REACTIONS (3)
  - OFF LABEL USE [None]
  - THROAT IRRITATION [None]
  - PRODUCT TASTE ABNORMAL [None]
